FAERS Safety Report 6241461-5 (Version None)
Quarter: 2009Q2

REPORT INFORMATION
  Report Type: 
  Country: None (occurrence: None)
  Receive Date: 20090623
  Receipt Date: 20030403
  Transmission Date: 20091009
  Serious: Yes (Hospitalization, Disabling)
  Sender: FDA-Public Use
  Company Number: TR-ROCHE-335396

PATIENT
  Sex: Female
  Weight: 46 kg

DRUGS (21)
  1. DACLIZUMAB [Suspect]
     Route: 042
     Dates: start: 20030310
  2. DACLIZUMAB [Suspect]
     Route: 042
     Dates: start: 20030325
  3. DACLIZUMAB [Suspect]
     Route: 042
     Dates: start: 20030408
  4. MYCOPHENOLATE MOFETIL [Suspect]
     Route: 048
     Dates: start: 20030312
  5. CYCLOSPORINE [Suspect]
     Route: 048
     Dates: start: 20030310
  6. CYCLOSPORINE [Suspect]
     Route: 048
     Dates: start: 20030325
  7. CYCLOSPORINE [Suspect]
     Route: 048
     Dates: start: 20030422
  8. CYCLOSPORINE [Suspect]
     Route: 048
     Dates: start: 20030925
  9. CYCLOSPORINE [Suspect]
     Route: 048
     Dates: start: 20040610
  10. METHYLPREDNISOLONE [Suspect]
     Route: 048
     Dates: start: 20030312
  11. METHYLPREDNISOLONE [Suspect]
     Route: 048
     Dates: start: 20030328
  12. METHYLPREDNISOLONE [Suspect]
     Route: 048
     Dates: start: 20030413
  13. PREDNISOLONE [Suspect]
     Route: 048
     Dates: start: 20030310
  14. DILTIAZEM [Concomitant]
     Route: 048
     Dates: start: 20030311
  15. DILTIAZEM [Concomitant]
     Route: 048
     Dates: start: 20030312
  16. DILTIAZEM [Concomitant]
     Route: 048
     Dates: start: 20030314
  17. OMEPRAZOL [Concomitant]
     Route: 048
     Dates: start: 20030311
  18. OXACILLIN [Concomitant]
     Route: 048
     Dates: start: 20030313
  19. DOXAZOSIN MESYLATE [Concomitant]
     Route: 048
     Dates: start: 20030314
  20. DOXAZOSIN MESYLATE [Concomitant]
     Route: 048
     Dates: start: 20030328, end: 20030413
  21. PARACETAMOL [Concomitant]
     Dosage: DRUG NAME REPORTED AS PARATCETHAMOL
     Route: 048
     Dates: start: 20030417

REACTIONS (2)
  - OSTEONECROSIS [None]
  - URINARY TRACT INFECTION [None]
